FAERS Safety Report 16046587 (Version 1)
Quarter: 2019Q1

REPORT INFORMATION
  Report Type: Report from Study
  Country: BE (occurrence: BE)
  Receive Date: 20190307
  Receipt Date: 20190307
  Transmission Date: 20190418
  Serious: Yes (Other)
  Sender: FDA-Public Use
  Company Number: BE-SA-2019SA060468

PATIENT
  Age: 87 Year
  Sex: Male

DRUGS (1)
  1. INSULIN GLARGINE [Suspect]
     Active Substance: INSULIN GLARGINE
     Indication: DIABETES MELLITUS
     Dosage: 5 IU, QD
     Route: 058
     Dates: start: 20180724

REACTIONS (3)
  - Fall [Unknown]
  - Arthralgia [Recovering/Resolving]
  - Chest injury [Recovering/Resolving]

NARRATIVE: CASE EVENT DATE: 20190222
